FAERS Safety Report 9487210 (Version 1)
Quarter: 2013Q3

REPORT INFORMATION
  Report Type: Report from Study
  Country: CO (occurrence: CO)
  Receive Date: 20130829
  Receipt Date: 20130829
  Transmission Date: 20140515
  Serious: Yes (Hospitalization, Other)
  Sender: FDA-Public Use
  Company Number: CO-ROCHE-1267621

PATIENT
  Age: 75 Year
  Sex: Female
  Weight: 62 kg

DRUGS (6)
  1. LUCENTIS [Suspect]
     Indication: EYE HAEMORRHAGE
     Route: 050
     Dates: start: 201212
  2. LUCENTIS [Suspect]
     Route: 050
     Dates: start: 20130321
  3. LUCENTIS [Suspect]
     Route: 050
     Dates: start: 20130509
  4. ACETAMINOPHEN [Concomitant]
  5. ENALAPRIL [Concomitant]
     Indication: HYPERTENSION
  6. TRAMADOL [Concomitant]

REACTIONS (6)
  - Fall [Unknown]
  - Humerus fracture [Recovered/Resolved with Sequelae]
  - Limb injury [Recovered/Resolved with Sequelae]
  - Diarrhoea [Not Recovered/Not Resolved]
  - Dizziness [Not Recovered/Not Resolved]
  - Headache [Not Recovered/Not Resolved]
